FAERS Safety Report 6130079-0 (Version None)
Quarter: 2009Q1

REPORT INFORMATION
  Report Type: 
  Country: None (occurrence: None)
  Receive Date: 20090324
  Receipt Date: 20090313
  Transmission Date: 20090719
  Serious: Yes (Death)
  Sender: FDA-Public Use
  Company Number: US-BRISTOL-MYERS SQUIBB COMPANY-14552459

PATIENT
  Age: 69 Year
  Sex: Male

DRUGS (13)
  1. LISINOPRIL [Suspect]
     Dosage: TAKEN AS TABS.
     Route: 048
  2. PHENYTOIN [Suspect]
     Route: 048
  3. METOPROLOL TARTRATE [Suspect]
     Route: 048
  4. ZETIA [Suspect]
     Route: 048
  5. ALBUTEROL SULFATE [Suspect]
     Route: 048
  6. AMLODIPINE [Suspect]
     Route: 048
  7. TIAGABINE HCL [Suspect]
     Route: 048
  8. RANITIDINE HCL [Suspect]
     Route: 048
  9. CLONIDINE [Suspect]
     Route: 048
  10. CLOPIDOGREL BISULFATE [Suspect]
     Route: 048
  11. LORAZEPAM [Suspect]
     Route: 048
  12. ATORVASTATIN CALCIUM [Suspect]
     Route: 048
  13. ASPIRIN [Suspect]
     Route: 048

REACTIONS (1)
  - COMPLETED SUICIDE [None]
